FAERS Safety Report 6184754-2 (Version None)
Quarter: 2009Q2

REPORT INFORMATION
  Report Type: 
  Country: None (occurrence: None)
  Receive Date: 20090508
  Receipt Date: 20090505
  Transmission Date: 20091009
  Serious: Yes (Other)
  Sender: FDA-Public Use
  Company Number: PHHY2009FR16918

PATIENT
  Age: 57 Year
  Sex: Female

DRUGS (1)
  1. EXFORGE [Suspect]
     Dosage: 50/80

REACTIONS (4)
  - FACE OEDEMA [None]
  - GINGIVITIS [None]
  - OEDEMA PERIPHERAL [None]
  - SPONTANEOUS HAEMATOMA [None]
